FAERS Safety Report 6890815-2 (Version None)
Quarter: 2010Q3

REPORT INFORMATION
  Report Type: 
  Country: None (occurrence: None)
  Receive Date: 20100731
  Receipt Date: 20090325
  Transmission Date: 20110219
  Serious: No
  Sender: FDA-Public Use
  Company Number: US-PFIZER INC-2009161211

PATIENT
  Sex: Female
  Weight: 65.77 kg

DRUGS (4)
  1. LIPITOR [Suspect]
     Indication: BLOOD CHOLESTEROL INCREASED
     Dosage: 10 MG, 1X/DAY
     Dates: start: 20080324, end: 20090110
  2. ZETIA [Concomitant]
     Dosage: UNK
     Dates: start: 20080801
  3. FISH OIL [Concomitant]
     Dosage: UNK
  4. VITAMINS [Concomitant]
     Dosage: UNK

REACTIONS (5)
  - ARTHRALGIA [None]
  - GAIT DISTURBANCE [None]
  - MALAISE [None]
  - MYALGIA [None]
  - PAIN IN EXTREMITY [None]
